FAERS Safety Report 5307966-6 (Version None)
Quarter: 2007Q2

REPORT INFORMATION
  Report Type: 
  Country: None (occurrence: None)
  Receive Date: 20070426
  Receipt Date: 20070419
  Transmission Date: 20071010
  Serious: Yes (Life-Threatening, Hospitalization)
  Sender: FDA-Public Use
  Company Number: 2007AP02037

PATIENT
  Age: 67 Year
  Sex: Male
  Weight: 50 kg

DRUGS (12)
  1. IRESSA [Suspect]
     Indication: NON-SMALL CELL LUNG CANCER
     Route: 048
     Dates: start: 20070319, end: 20070402
  2. TOFRANIL [Concomitant]
     Indication: DEPRESSION
     Route: 048
     Dates: start: 20070219, end: 20070228
  3. TOFRANIL [Concomitant]
     Route: 048
     Dates: start: 20070301, end: 20070404
  4. TAKEPRON [Concomitant]
     Indication: GASTRIC ULCER
     Route: 048
     Dates: start: 20070219, end: 20070319
  5. TAKEPRON [Concomitant]
     Route: 048
     Dates: start: 20070320, end: 20070404
  6. SLOW-K [Concomitant]
     Indication: HYPOKALAEMIA
     Route: 048
     Dates: start: 20070220, end: 20070404
  7. ZOMETA [Concomitant]
     Indication: METASTASES TO BONE
     Route: 041
     Dates: start: 20070301
  8. DEPAS [Concomitant]
     Indication: PSYCHOSOMATIC DISEASE
     Route: 048
     Dates: start: 20070311, end: 20070404
  9. VOLTAREN [Concomitant]
     Indication: METASTASES TO BONE
     Route: 054
     Dates: start: 20070311, end: 20070404
  10. GASMOTIN [Concomitant]
     Indication: GASTRITIS
     Route: 048
     Dates: start: 20070327, end: 20070404
  11. ZOMETA [Concomitant]
     Route: 041
     Dates: start: 20070329
  12. RADIOTHERAPY [Concomitant]
     Dosage: 40 GY TO RIGHT FEMUR, 40GY TO THORACOLUMBAR SPINE
     Dates: start: 20070226, end: 20070326

REACTIONS (2)
  - LEUKOPENIA [None]
  - THROMBOCYTOPENIA [None]
